FAERS Safety Report 22016560 (Version 1)
Quarter: 2023Q1

REPORT INFORMATION
  Report Type: Spontaneous
  Country: US (occurrence: US)
  Receive Date: 20230221
  Receipt Date: 20230221
  Transmission Date: 20230417
  Serious: Yes (Hospitalization, Other)
  Sender: FDA-Public Use
  Company Number: US-Blueprint Medicines Corporation-841

PATIENT
  Age: 71 Year
  Sex: Female

DRUGS (4)
  1. AYVAKIT [Suspect]
     Active Substance: AVAPRITINIB
     Indication: Neoplasm malignant
     Route: 065
     Dates: start: 20220813
  2. AYVAKIT [Suspect]
     Active Substance: AVAPRITINIB
     Indication: Gastrointestinal stromal tumour
  3. AYVAKIT [Suspect]
     Active Substance: AVAPRITINIB
  4. HYDROCHLOROTHIAZIDE [Concomitant]
     Active Substance: HYDROCHLOROTHIAZIDE
     Indication: Product used for unknown indication
     Route: 065

REACTIONS (8)
  - Urinary tract infection [Unknown]
  - Dehydration [Unknown]
  - Haemoglobin decreased [Unknown]
  - Renal disorder [Unknown]
  - Fall [Unknown]
  - Ankle fracture [Unknown]
  - Hypotension [Unknown]
  - Pain [Unknown]

NARRATIVE: CASE EVENT DATE: 20230118
